FAERS Safety Report 8521654-4 (Version None)
Quarter: 2012Q3

REPORT INFORMATION
  Report Type: 
  Country: None (occurrence: None)
  Receive Date: 20120719
  Receipt Date: 20120717
  Transmission Date: 20120928
  Serious: Yes (Life-Threatening, Other)
  Sender: FDA-Public Use
  Company Number: PHBS2001AU12456

PATIENT
  Sex: Female
  Weight: 107.2 kg

DRUGS (9)
  1. OLANZAPINE [Concomitant]
     Indication: SCHIZOPHRENIA
     Dosage: 20 MG, OT, 5 MG AT MORNING AND 15 MG AT NIGHT
     Route: 048
  2. CELEBREX [Concomitant]
     Indication: BACK PAIN
     Dosage: 200 MG, PER DAY
     Route: 048
     Dates: start: 20011101
  3. CLOZARIL [Suspect]
     Indication: SCHIZOPHRENIA
     Dosage: 100 MG,
     Dates: start: 20120501, end: 20120510
  4. CLONAZEPAM [Concomitant]
     Indication: AGITATION
     Dosage: O.5 -1 MG/ PRN
     Route: 048
  5. VALPROATE SODIUM [Concomitant]
     Indication: AFFECTIVE DISORDER
     Dosage: 1600 MG/D
     Route: 048
     Dates: start: 20010601
  6. VALPROATE SODIUM [Concomitant]
     Indication: SCHIZOPHRENIA
     Dosage: 2 G, BID
  7. ZUCLOPENTHIXOL DECANOATE [Concomitant]
     Indication: SCHIZOPHRENIA
     Dosage: 500 MG, EVERY TWO WEEKS
     Route: 030
  8. METFORMIN HYDROCHLORIDE [Concomitant]
     Dosage: 200 MG, DAILY
  9. CLOZARIL [Suspect]
     Indication: PSYCHOTIC DISORDER
     Dosage: 100 MG
     Route: 048
     Dates: start: 20011119

REACTIONS (15)
  - CHEST PAIN [None]
  - DYSPNOEA [None]
  - PERICARDITIS [None]
  - ARTHRALGIA [None]
  - TROPONIN INCREASED [None]
  - EOSINOPHILIA [None]
  - PYREXIA [None]
  - INFLUENZA LIKE ILLNESS [None]
  - TACHYCARDIA [None]
  - MYOCARDITIS [None]
  - MALAISE [None]
  - PERICARDIAL EFFUSION [None]
  - ELECTROCARDIOGRAM QRS COMPLEX PROLONGED [None]
  - DECREASED APPETITE [None]
  - FATIGUE [None]
